FAERS Safety Report 4409954-0 (Version None)
Quarter: 2004Q3

REPORT INFORMATION
  Report Type: 
  Country: None (occurrence: None)
  Receive Date: 20040726
  Receipt Date: 20040720
  Transmission Date: 20050211
  Serious: Yes (Other)
  Sender: FDA-Public Use
  Company Number: 028-20785-03090371

PATIENT
  Age: 38 Year
  Sex: Female

DRUGS (5)
  1. THALOMID [Suspect]
     Indication: MULTIPLE MYELOMA
     Dosage: 200 MG, DAILY, ORAL;  100 MG, BID, ORAL
     Route: 048
     Dates: end: 20030701
  2. THALOMID [Suspect]
     Indication: MULTIPLE MYELOMA
     Dosage: 200 MG, DAILY, ORAL;  100 MG, BID, ORAL
     Route: 048
     Dates: start: 20030901
  3. PAMIDRONATE DISODIUM [Concomitant]
  4. DEXAMETHASONE [Concomitant]
  5. COUMADIN [Concomitant]

REACTIONS (3)
  - BLOOD FOLLICLE STIMULATING HORMONE INCREASED [None]
  - BLOOD HUMAN CHORIONIC GONADOTROPIN INCREASED [None]
  - BLOOD LUTEINISING HORMONE INCREASED [None]
